FAERS Safety Report 18775045 (Version 5)
Quarter: 2021Q4

REPORT INFORMATION
  Report Type: Report from Study
  Country: NO (occurrence: None)
  Receive Date: 20210122
  Receipt Date: 20211208
  Transmission Date: 20220304
  Serious: Yes (Hospitalization)
  Sender: FDA-Public Use
  Company Number: NO-ROCHE-2754747

PATIENT
  Age: 77 Year
  Sex: Male
  Weight: 74 kg

DRUGS (25)
  1. ATEZOLIZUMAB [Suspect]
     Active Substance: ATEZOLIZUMAB
     Indication: Small cell lung cancer
     Dosage: DATE OF LAST DOSE OF ATEZOLIZUMAB PRIOR TO SAE ONSET: 28/JAN/2021 AND 16/FEB/2021?NO OF COURSES: 4
     Route: 042
     Dates: start: 20201207
  2. PLATINUM [Suspect]
     Active Substance: PLATINUM
     Indication: Small cell lung cancer
     Dosage: DATE OF FIRST DAY OF LAST COURSE OF PLATINUM PRIOR TO SAE ONSET: 28/OCT/2020?NO OF COURSES: 4
     Route: 065
     Dates: start: 20200819
  3. ETOPOSIDE [Suspect]
     Active Substance: ETOPOSIDE
     Indication: Small cell lung cancer
     Dosage: DATE OF  FIRST DAY OF LAST COURSE OF ETOPOSIDE PRIOR TO SAE ONSET: 28/OCT/2020?NO OF COURSES: 4
     Route: 065
     Dates: start: 20200819
  4. ASPIRIN\MAGNESIUM OXIDE [Concomitant]
     Active Substance: ASPIRIN\MAGNESIUM OXIDE
  5. METOPROLOL [Concomitant]
     Active Substance: METOPROLOL
     Indication: Hypertension
  6. AMLODIPINE [Concomitant]
     Active Substance: AMLODIPINE BESYLATE
     Indication: Hypertension
     Dosage: 5 MG*1
  7. METFORMIN [Concomitant]
     Active Substance: METFORMIN HYDROCHLORIDE
     Indication: Diabetes mellitus
     Dosage: 500 MG*1
  8. VICTOZA [Concomitant]
     Active Substance: LIRAGLUTIDE
     Indication: Diabetes mellitus
     Dosage: STRENGTH: 6 MG/ML?1.8 MG*1
  9. SERETIDE [Concomitant]
     Active Substance: FLUTICASONE PROPIONATE\SALMETEROL XINAFOATE
     Indication: Chronic obstructive pulmonary disease
     Dosage: 2*2?AEROSOL 25/250 MCG/DOSE
  10. INCRUSE ELLIPTA [Concomitant]
     Active Substance: UMECLIDINIUM BROMIDE
     Indication: Chronic obstructive pulmonary disease
     Dosage: 55 MCG/DOSE 1*1
  11. DUPHALAC [Concomitant]
     Active Substance: LACTULOSE
     Dosage: 667 MG/ML?15 ML*2
  12. ACETAMINOPHEN [Concomitant]
     Active Substance: ACETAMINOPHEN
     Indication: Analgesic therapy
     Dosage: 1 G*4
  13. ACETYLCYSTEINE [Concomitant]
     Active Substance: ACETYLCYSTEINE
     Indication: Chronic obstructive pulmonary disease
     Dosage: 200MG*3
  14. PARALGIN FORTE [Concomitant]
     Indication: Analgesic therapy
     Dosage: 400/30 MG?1*4
  15. ALBUTEROL [Concomitant]
     Active Substance: ALBUTEROL
     Indication: Chronic obstructive pulmonary disease
     Dosage: AEROSOL 0.1 MG/DOSE?1-2*4
  16. VIAGRA [Concomitant]
     Active Substance: SILDENAFIL CITRATE
     Indication: Erectile dysfunction
     Dosage: 50-100 MG
  17. METOCLOPRAMIDE HYDROCHLORIDE [Concomitant]
     Active Substance: METOCLOPRAMIDE HYDROCHLORIDE
     Dosage: ANTIEMETIC?10MG*3
  18. ZOFRAN [Concomitant]
     Active Substance: ONDANSETRON HYDROCHLORIDE
     Dosage: 1-2*2-3?ANTIEMETIC
  19. SIMVASTATIN [Concomitant]
     Active Substance: SIMVASTATIN
     Dosage: 40 MG X 1
  20. PARACET (NORWAY) [Concomitant]
  21. BRONKYL [Concomitant]
     Indication: Chronic obstructive pulmonary disease
  22. ALBUTEROL [Concomitant]
     Active Substance: ALBUTEROL
  23. CLOXACILLIN [Concomitant]
     Active Substance: CLOXACILLIN
     Indication: Pneumonia
  24. NOREPINEPHRINE\NOREPINEPHRINE BITARTRATE [Concomitant]
     Active Substance: NOREPINEPHRINE\NOREPINEPHRINE BITARTRATE
     Indication: Sepsis
     Dates: start: 20210505, end: 20210506
  25. GENTAMICIN [Concomitant]
     Active Substance: GENTAMICIN
     Indication: Pneumonia
     Dates: start: 20210505, end: 20210507

REACTIONS (2)
  - Bronchitis [Recovered/Resolved]
  - Bronchitis [Recovered/Resolved]

NARRATIVE: CASE EVENT DATE: 20210111
